FAERS Safety Report 8003153-1 (Version None)
Quarter: 2011Q4

REPORT INFORMATION
  Report Type: 
  Country: None (occurrence: None)
  Receive Date: 20111222
  Receipt Date: 20111214
  Transmission Date: 20120403
  Serious: Yes (Other)
  Sender: FDA-Public Use
  Company Number: PHHY2011VE110002

PATIENT
  Sex: Female

DRUGS (4)
  1. OXYGEN [Concomitant]
  2. ADALAT [Concomitant]
     Dosage: 30 MG, QD
  3. LOSARTAN POTASSIUM [Concomitant]
     Dosage: 16 MG, QD
  4. ZOLEDRONOC ACID [Suspect]
     Indication: OSTEOPOROSIS
     Dosage: 5 MG(ONCE A YEAR), UNK
     Route: 042
     Dates: start: 20101110

REACTIONS (2)
  - PAIN [None]
  - GAIT DISTURBANCE [None]
